FAERS Safety Report 18044135 (Version 11)
Quarter: 2021Q4

REPORT INFORMATION
  Report Type: Report from Study
  Country: DK (occurrence: DK)
  Receive Date: 20200720
  Receipt Date: 20211208
  Transmission Date: 20220303
  Serious: Yes (Other)
  Sender: FDA-Public Use
  Company Number: DK-CELGENE-DNK-20200703439

PATIENT
  Age: 63 Year
  Sex: Female

DRUGS (24)
  1. LENALIDOMIDE [Suspect]
     Active Substance: LENALIDOMIDE
     Indication: Plasma cell myeloma
     Dosage: 10 MILLIGRAM
     Route: 048
     Dates: start: 20160905, end: 20161115
  2. LENALIDOMIDE [Suspect]
     Active Substance: LENALIDOMIDE
     Dosage: 7.5 MILLIGRAM
     Route: 048
     Dates: start: 20170822, end: 20170912
  3. LENALIDOMIDE [Suspect]
     Active Substance: LENALIDOMIDE
     Dosage: 10 MILLIGRAM
     Route: 048
     Dates: end: 20180617
  4. LENALIDOMIDE [Suspect]
     Active Substance: LENALIDOMIDE
     Dosage: 25 MILLIGRAM
     Route: 048
     Dates: start: 20180618
  5. LENALIDOMIDE [Suspect]
     Active Substance: LENALIDOMIDE
     Dosage: DOSE REDUCTION TO 15 MILLIGRAM
     Route: 048
     Dates: start: 20181105
  6. DURVALUMAB [Suspect]
     Active Substance: DURVALUMAB
     Indication: Plasma cell myeloma
     Dosage: 1500 MG X1/CYCLE
     Route: 041
     Dates: start: 20161115, end: 20161115
  7. DURVALUMAB [Suspect]
     Active Substance: DURVALUMAB
     Dosage: 500 MG X1/CYCLE
     Route: 041
     Dates: start: 20170724
  8. DURVALUMAB [Suspect]
     Active Substance: DURVALUMAB
     Dosage: 500 MG X1/CYCLE
     Route: 041
     Dates: end: 20170918
  9. COLGATE DURAPHAT [Concomitant]
     Active Substance: SODIUM FLUORIDE
     Indication: Product used for unknown indication
     Dosage: 5 MG/G (153 G)
     Route: 048
     Dates: start: 20200219
  10. PANTOPRAZOLE SODIUM [Concomitant]
     Active Substance: PANTOPRAZOLE SODIUM
     Indication: Product used for unknown indication
     Dosage: 40 MILLIGRAM
     Route: 048
     Dates: start: 20190408
  11. FENTANYL [Concomitant]
     Active Substance: FENTANYL
     Indication: Product used for unknown indication
     Dosage: 25 MICROGRAM
     Route: 062
     Dates: start: 20200627
  12. FENTANYL [Concomitant]
     Active Substance: FENTANYL
     Dosage: 4 MICROGRAM
     Route: 062
     Dates: start: 20200417
  13. UNIKALK FORTE [Concomitant]
     Indication: Product used for unknown indication
     Dosage: 400 MG+19 UG
     Route: 048
     Dates: start: 20200219
  14. ACETAMINOPHEN [Concomitant]
     Active Substance: ACETAMINOPHEN
     Indication: Product used for unknown indication
     Dosage: 1500 MILLIGRAM
     Route: 048
     Dates: start: 20160922
  15. OXYCODONE [Concomitant]
     Active Substance: OXYCODONE
     Indication: Product used for unknown indication
     Route: 048
     Dates: start: 20200313
  16. CETIRIZINE HYDROCHLORIDE [Concomitant]
     Active Substance: CETIRIZINE HYDROCHLORIDE
     Indication: Product used for unknown indication
     Route: 048
     Dates: start: 20200106
  17. ZOLEDRONIC ACID [Concomitant]
     Active Substance: ZOLEDRONIC ACID
     Indication: Product used for unknown indication
     Dosage: DOSE NOT PROVIDED
     Route: 065
     Dates: start: 20170207, end: 20180129
  18. DEXAMETHASONE [Concomitant]
     Active Substance: DEXAMETHASONE
     Indication: Plasma cell myeloma
     Dosage: DOSE NOT PROVIDED
     Route: 065
     Dates: start: 20191028, end: 20200123
  19. DEXAMETHASONE [Concomitant]
     Active Substance: DEXAMETHASONE
     Dosage: DOSE NOT PROVIDED
     Route: 065
     Dates: start: 20190311, end: 20191021
  20. DEXAMETHASONE [Concomitant]
     Active Substance: DEXAMETHASONE
     Dosage: DOSE NOT PROVIDED
     Route: 065
     Dates: start: 20190109, end: 20190311
  21. DEXAMETHASONE [Concomitant]
     Active Substance: DEXAMETHASONE
     Dosage: DOSE NOT PROVIDED
     Route: 065
     Dates: start: 20180702, end: 20181227
  22. DEXAMETHASONE [Concomitant]
     Active Substance: DEXAMETHASONE
     Dosage: DOSE NOT PROVIDED
     Route: 065
     Dates: start: 20200618
  23. DEXAMETHASONE [Concomitant]
     Active Substance: DEXAMETHASONE
     Dosage: DOSE NOT PROVIDED
     Route: 065
     Dates: start: 20190701
  24. DEXAMETHASONE [Concomitant]
     Active Substance: DEXAMETHASONE
     Dosage: DOSE NOT PROVIDED
     Route: 065
     Dates: start: 20200618

REACTIONS (1)
  - Keratoacanthoma [Recovered/Resolved]

NARRATIVE: CASE EVENT DATE: 20200501
